FAERS Safety Report 6277915-5 (Version None)
Quarter: 2009Q3

REPORT INFORMATION
  Report Type: 
  Country: None (occurrence: None)
  Receive Date: 20090722
  Receipt Date: 20070507
  Transmission Date: 20100115
  Serious: No
  Sender: FDA-Public Use
  Company Number: US-ASTRAZENECA-2006UW27841

PATIENT
  Sex: Female
  Weight: 85.7 kg

DRUGS (28)
  1. SEROQUEL [Suspect]
     Indication: BIPOLAR DISORDER
     Dosage: 50 TO 75 MG
     Route: 048
     Dates: start: 20020101, end: 20060101
  2. SEROQUEL [Suspect]
     Indication: SLEEP DISORDER
     Dosage: 50 TO 75 MG
     Route: 048
     Dates: start: 20020101, end: 20060101
  3. SEROQUEL [Suspect]
     Dosage: 25 MG - 75 MG
     Route: 048
     Dates: start: 20020104
  4. SEROQUEL [Suspect]
     Dosage: 25 MG - 75 MG
     Route: 048
     Dates: start: 20020104
  5. OTHER PSYCHIATRIC MEDICATION [Concomitant]
     Dates: start: 20000101
  6. ALPRAZOLAM [Concomitant]
  7. CELEXA [Concomitant]
  8. IMDUR [Concomitant]
  9. ATENOLOL [Concomitant]
  10. LIPITOR [Concomitant]
  11. NEURONTIN [Concomitant]
  12. GEMFIBROZIL [Concomitant]
  13. VALSARTAN [Concomitant]
  14. GLUCOTROL [Concomitant]
  15. CLONIDINE [Concomitant]
  16. METFORMIN HCL [Concomitant]
  17. PROZAC [Concomitant]
  18. NICODERM [Concomitant]
  19. FEOSOL [Concomitant]
  20. ULTRAM [Concomitant]
  21. NIACIN [Concomitant]
  22. ACTOS [Concomitant]
  23. VERAPAMIL [Concomitant]
  24. HUMULIN N [Concomitant]
  25. ENALAPRIL MALEATE [Concomitant]
  26. REMERON [Concomitant]
  27. ISOSORBIDE DINITRATE [Concomitant]
  28. ASPIRIN [Concomitant]

REACTIONS (1)
  - DIABETES MELLITUS [None]
